FAERS Safety Report 24323345 (Version 6)
Quarter: 2025Q1

REPORT INFORMATION
  Report Type: Spontaneous
  Country: JP (occurrence: JP)
  Receive Date: 20240916
  Receipt Date: 20250116
  Transmission Date: 20250409
  Serious: Yes (Death, Other)
  Sender: SANOFI AVENTIS
  Company Number: JP-SA-2024SA266598

PATIENT
  Age: 60 Year
  Sex: Male

DRUGS (4)
  1. REZUROCK [Suspect]
     Active Substance: BELUMOSUDIL
     Indication: Chronic graft versus host disease
     Dosage: 200 MG, QD
     Route: 048
     Dates: start: 20240701, end: 20241021
  2. MEDROL [Concomitant]
     Active Substance: METHYLPREDNISOLONE
     Route: 048
  3. CRESEMBA [Concomitant]
     Active Substance: ISAVUCONAZONIUM SULFATE
     Route: 041
  4. ACYCLOVIR [Concomitant]
     Active Substance: ACYCLOVIR
     Route: 041

REACTIONS (3)
  - Multiple organ dysfunction syndrome [Fatal]
  - Pancreatitis acute [Fatal]
  - Cardiac failure [Recovering/Resolving]

NARRATIVE: CASE EVENT DATE: 20240801
